FAERS Safety Report 18311402 (Version 1)
Quarter: 2020Q3

REPORT INFORMATION
  Report Type: Spontaneous
  Country: US (occurrence: US)
  Receive Date: 20200924
  Receipt Date: 20200924
  Transmission Date: 20201103
  Serious: Yes (Death)
  Sender: FDA-Public Use
  Company Number: None

PATIENT
  Age: 49 Year
  Sex: Male

DRUGS (10)
  1. GABAPENTIN 600MG [Concomitant]
     Active Substance: GABAPENTIN
  2. FLUOXETINE 60MG [Concomitant]
     Active Substance: FLUOXETINE HYDROCHLORIDE
  3. LOKELMA [Suspect]
     Active Substance: SODIUM ZIRCONIUM CYCLOSILICATE
     Indication: HYPERKALAEMIA
     Dosage: ?          OTHER FREQUENCY:EVERY OTHER DAY;?
     Route: 048
  4. ATORVASTATIN 80MG [Concomitant]
     Active Substance: ATORVASTATIN
  5. FUROSEMIDE 80MG [Concomitant]
  6. METOPROLOL TARTRATE 50MG [Concomitant]
     Active Substance: METOPROLOL TARTRATE
  7. TERBINAFINE 250MG [Concomitant]
     Active Substance: TERBINAFINE
  8. ASPIRIN 81MG EC [Concomitant]
  9. AMLODIPINE BESYLATE 5MG [Concomitant]
     Active Substance: AMLODIPINE BESYLATE
  10. PLAVIX [Concomitant]
     Active Substance: CLOPIDOGREL BISULFATE

REACTIONS (1)
  - Death [None]

NARRATIVE: CASE EVENT DATE: 20200924
